FAERS Safety Report 21938050 (Version 1)
Quarter: 2023Q1

REPORT INFORMATION
  Report Type: Report from Study
  Country: US (occurrence: US)
  Receive Date: 20230201
  Receipt Date: 20230201
  Transmission Date: 20230417
  Serious: No
  Sender: FDA-Public Use
  Company Number: US-INCYTE CORPORATION-2021IN008626

PATIENT

DRUGS (3)
  1. PEMIGATINIB [Suspect]
     Active Substance: PEMIGATINIB
     Indication: Cholangiocarcinoma
     Dosage: 9 MILLIGRAM
     Route: 048
     Dates: start: 20210910, end: 20210913
  2. PEMIGATINIB [Suspect]
     Active Substance: PEMIGATINIB
     Dosage: 9 MILLIGRAM
     Route: 048
     Dates: start: 20210915, end: 20210917
  3. PEMIGATINIB [Suspect]
     Active Substance: PEMIGATINIB
     Dosage: 13.5 MILLIGRAM
     Route: 048
     Dates: start: 20210731

REACTIONS (13)
  - Confusional state [Unknown]
  - Ammonia increased [Unknown]
  - Glomerular filtration rate decreased [Unknown]
  - Pain [Unknown]
  - Thirst [Unknown]
  - Dry eye [Unknown]
  - Fatigue [Unknown]
  - Decreased appetite [Unknown]
  - Dry mouth [Unknown]
  - Nausea [Unknown]
  - Stomatitis [Unknown]
  - Pruritus [Unknown]
  - Onycholysis [Unknown]

NARRATIVE: CASE EVENT DATE: 20210914
